FAERS Safety Report 5828639-7 (Version None)
Quarter: 2008Q3

REPORT INFORMATION
  Report Type: 
  Country: None (occurrence: None)
  Receive Date: 20080730
  Receipt Date: 20080730
  Transmission Date: 20090109
  Serious: Yes (Other)
  Sender: FDA-Public Use
  Company Number: None

PATIENT
  Sex: Female
  Weight: 36.2878 kg

DRUGS (2)
  1. DILANTIN [Suspect]
     Indication: CONVULSION
     Dosage: 100 MG 3 PER DAY PO
     Route: 048
     Dates: start: 20080616, end: 20080709
  2. DILANTIN [Suspect]
     Indication: CONVULSION
     Dosage: 100 MG 3 PER DAY PO
     Route: 048
     Dates: start: 20080717, end: 20080723

REACTIONS (4)
  - DRUG INEFFECTIVE [None]
  - NO THERAPEUTIC RESPONSE [None]
  - RASH [None]
  - THERAPEUTIC RESPONSE UNEXPECTED WITH DRUG SUBSTITUTION [None]
